FAERS Safety Report 7252188-5 (Version None)
Quarter: 2011Q1

REPORT INFORMATION
  Report Type: 
  Country: None (occurrence: None)
  Receive Date: 20110129
  Receipt Date: 20100413
  Transmission Date: 20110831
  Serious: No
  Sender: FDA-Public Use
  Company Number: US-ABBOTT-10P-163-0639296-00

PATIENT
  Age: 59 Year
  Sex: Female
  Weight: 63.56 kg

DRUGS (5)
  1. PLAQUINAL [Concomitant]
     Indication: RHEUMATOID ARTHRITIS
  2. LOVASTATIN [Suspect]
     Indication: BLOOD CHOLESTEROL INCREASED
     Dates: start: 20100217, end: 20100220
  3. VOLTARIN [Concomitant]
     Indication: RHEUMATOID ARTHRITIS
  4. HUMIRA [Suspect]
     Indication: RHEUMATOID ARTHRITIS
     Dates: start: 20100215, end: 20100315
  5. HORMONE REPLACEMENT [Concomitant]
     Indication: MENOPAUSE
     Route: 048

REACTIONS (3)
  - SKIN EXFOLIATION [None]
  - URTICARIA [None]
  - SYSTEMIC LUPUS ERYTHEMATOSUS RASH [None]
